FAERS Safety Report 13096033 (Version 1)
Quarter: 2017Q1

REPORT INFORMATION
  Report Type: Report from Study
  Country: ES (occurrence: ES)
  Receive Date: 20170109
  Receipt Date: 20170109
  Transmission Date: 20170428
  Serious: Yes (Death, Other)
  Sender: FDA-Public Use
  Company Number: ES-ROCHE-1874408

PATIENT

DRUGS (10)
  1. CYCLOSPORINE A [Concomitant]
     Active Substance: CYCLOSPORINE
     Route: 048
  2. MELPHALAN [Suspect]
     Active Substance: MELPHALAN
     Indication: PROPHYLAXIS AGAINST TRANSPLANT REJECTION
     Dosage: ON DAYS -3 AND -2
     Route: 065
  3. CYCLOSPORINE A [Concomitant]
     Active Substance: CYCLOSPORINE
     Indication: PROPHYLAXIS AGAINST GRAFT VERSUS HOST DISEASE
     Dosage: FROMDAYS -7 TO -2, 1.5MG/KG FROMDAY -1 TO +1, AND ADJUSTED TO BLOOD LEVELS AFTERWARDS
     Route: 065
  4. RITUXIMAB [Suspect]
     Active Substance: RITUXIMAB
     Indication: PROPHYLAXIS AGAINST TRANSPLANT REJECTION
     Dosage: ON DAYS -21 AND -14
     Route: 065
  5. YTTRIUM-90 IBRITUMOMAB TIUXETAN [Suspect]
     Active Substance: IBRITUMOMAB TIUXETAN
     Indication: PROPHYLAXIS AGAINST TRANSPLANT REJECTION
     Dosage: 0.4 MCI/KG
     Route: 065
  6. FLUDARABINE [Suspect]
     Active Substance: FLUDARABINE PHOSPHATE
     Indication: PROPHYLAXIS AGAINST TRANSPLANT REJECTION
     Dosage: ON DAYS -7 TO -3,
     Route: 065
  7. THIOTEPA. [Suspect]
     Active Substance: THIOTEPA
     Indication: PROPHYLAXIS AGAINST TRANSPLANT REJECTION
     Dosage: FOR RELAPSE PATIENTS: ON DAY -8
     Route: 065
  8. FOLIC ACID. [Concomitant]
     Active Substance: FOLIC ACID
     Indication: PROPHYLAXIS AGAINST GRAFT VERSUS HOST DISEASE
     Route: 065
  9. METHOTREXATE. [Concomitant]
     Active Substance: METHOTREXATE
     Dosage: ON DAY +1 AND 10 MG/M2 ON DAYS +3, +6, AND +11.
     Route: 042
  10. MELPHALAN [Suspect]
     Active Substance: MELPHALAN
     Dosage: FOR RELAPSE PATIENTS: ONLY 1 DOSE
     Route: 065

REACTIONS (10)
  - Chronic kidney disease [Unknown]
  - Infection [Unknown]
  - Septic shock [Fatal]
  - Pneumonia [Fatal]
  - Diarrhoea [Unknown]
  - Cardiac failure congestive [Unknown]
  - Aspergillus infection [Fatal]
  - Encephalitis viral [Fatal]
  - Pleural effusion [Unknown]
  - Cytomegalovirus enteritis [Unknown]
